FAERS Safety Report 13505410 (Version 3)
Quarter: 2017Q3

REPORT INFORMATION
  Report Type: Report from Study
  Country: US (occurrence: US)
  Receive Date: 20170502
  Receipt Date: 20170707
  Transmission Date: 20171127
  Serious: Yes (Hospitalization, Other)
  Sender: FDA-Public Use
  Company Number: US-ACTELION-A-NJ2016-135941

PATIENT
  Age: 59 Year
  Sex: Female
  Weight: 54.42 kg

DRUGS (13)
  1. UPTRAVI [Suspect]
     Active Substance: SELEXIPAG
     Dosage: 200 MCG, BID
     Route: 048
  2. FISH OIL [Concomitant]
     Active Substance: FISH OIL
  3. UPTRAVI [Suspect]
     Active Substance: SELEXIPAG
     Indication: PULMONARY ARTERIAL HYPERTENSION
     Dosage: 1000 MCG, BID
     Route: 048
  4. ELIQUIS [Concomitant]
     Active Substance: APIXABAN
  5. SERTRALINE [Concomitant]
     Active Substance: SERTRALINE HYDROCHLORIDE
  6. DESYREL [Concomitant]
     Active Substance: TRAZODONE HYDROCHLORIDE
  7. SILDENAFIL. [Concomitant]
     Active Substance: SILDENAFIL
  8. IMURAN [Concomitant]
     Active Substance: AZATHIOPRINE
  9. POTASSIUM [Concomitant]
     Active Substance: POTASSIUM
  10. TRACLEER [Suspect]
     Active Substance: BOSENTAN
     Indication: PULMONARY ARTERIAL HYPERTENSION
     Dosage: 125 MG, BID
     Route: 048
     Dates: start: 20160129
  11. DIGOXIN. [Concomitant]
     Active Substance: DIGOXIN
  12. PREVACID [Concomitant]
     Active Substance: LANSOPRAZOLE
  13. VITAMIN D3 [Concomitant]
     Active Substance: CHOLECALCIFEROL

REACTIONS (4)
  - Cough [Unknown]
  - Dyspnoea [Unknown]
  - Femur fracture [Unknown]
  - Pneumonia [Not Recovered/Not Resolved]
